FAERS Safety Report 9871315 (Version 2)
Quarter: 2014Q1

REPORT INFORMATION
  Report Type: Report from Study
  Country: CZ (occurrence: CZ)
  Receive Date: 20140205
  Receipt Date: 20140205
  Transmission Date: 20141002
  Serious: Yes (Hospitalization)
  Sender: FDA-Public Use
  Company Number: PHHO2012CZ009141

PATIENT
  Age: 62 Year
  Sex: Male
  Weight: 71 kg

DRUGS (7)
  1. AFINITOR [Suspect]
     Indication: CARCINOID TUMOUR
     Dosage: UNK
     Route: 048
     Dates: start: 20080430, end: 20120617
  2. SANDOSTATIN LAR [Suspect]
     Indication: CARCINOID TUMOUR
     Dosage: 30 MG, QMO
     Route: 030
     Dates: start: 20080430, end: 20120530
  3. LOKREN [Concomitant]
     Indication: HYPERTENSION
     Dosage: 5 MG, QD
     Route: 048
  4. PANCREOLAN FORTE [Concomitant]
     Indication: DYSPEPSIA
     Dosage: 220 MG, UNK
     Route: 048
     Dates: start: 20080402
  5. SORBIFER DURULES [Concomitant]
     Indication: ANAEMIA
     Dosage: 200 MG, QD
     Route: 048
     Dates: start: 20100203
  6. INSULIN HUMULIN [Concomitant]
     Indication: DIABETES MELLITUS
     Dosage: UNK
     Route: 058
     Dates: start: 20111005
  7. MUCOSOLVAN [Concomitant]
     Indication: COUGH
     Dosage: 60 MG, QD
     Route: 048
     Dates: start: 20120502

REACTIONS (1)
  - Metastasis [Recovering/Resolving]
